FAERS Safety Report 18961677 (Version 2)
Quarter: 2021Q1

REPORT INFORMATION
  Report Type: Report from Study
  Country: IT (occurrence: IT)
  Receive Date: 20210302
  Receipt Date: 20210319
  Transmission Date: 20210420
  Serious: Yes (Hospitalization)
  Sender: FDA-Public Use
  Company Number: IT-EXELIXIS-XL18421037914

PATIENT
  Age: 67 Year
  Sex: Male
  Weight: 75.3 kg

DRUGS (14)
  1. PARACETAMOL [Concomitant]
     Active Substance: ACETAMINOPHEN
  2. LIOTHYRONINE [Concomitant]
     Active Substance: LIOTHYRONINE
  3. SELEPARINA [Concomitant]
     Active Substance: NADROPARIN CALCIUM
  4. RABEPRAZOLE [Concomitant]
     Active Substance: RABEPRAZOLE
  5. FENTANYL. [Concomitant]
     Active Substance: FENTANYL
  6. BARNIDIPINE [Concomitant]
     Active Substance: BARNIDIPINE
  7. PREGABALIN. [Concomitant]
     Active Substance: PREGABALIN
  8. DEXAMETHASONE. [Concomitant]
     Active Substance: DEXAMETHASONE
  9. ATENOLOL. [Concomitant]
     Active Substance: ATENOLOL
  10. OLMESARTAN MEDOXOMIL. [Concomitant]
     Active Substance: OLMESARTAN MEDOXOMIL
  11. FEBUXOSTAT. [Concomitant]
     Active Substance: FEBUXOSTAT
  12. XL184 [Suspect]
     Active Substance: CABOZANTINIB
     Indication: THYROID CANCER
     Dosage: 60 MG, QD
     Route: 048
     Dates: start: 20201221
  13. LEVOTHYROXINE. [Concomitant]
     Active Substance: LEVOTHYROXINE
  14. FUROSEMIDE. [Concomitant]
     Active Substance: FUROSEMIDE

REACTIONS (3)
  - Troponin T increased [Recovered/Resolved]
  - Pyrexia [Recovered/Resolved]
  - Diarrhoea [Recovered/Resolved]

NARRATIVE: CASE EVENT DATE: 20210221
